FAERS Safety Report 8241574-2 (Version None)
Quarter: 2012Q1

REPORT INFORMATION
  Report Type: 
  Country: None (occurrence: None)
  Receive Date: 20120328
  Receipt Date: 20120323
  Transmission Date: 20120608
  Serious: Yes (Other)
  Sender: FDA-Public Use
  Company Number: US-PFIZER INC-2012076144

PATIENT
  Sex: Male

DRUGS (2)
  1. LYRICA [Suspect]
     Dosage: 150 MG, 3X/DAY
     Route: 048
  2. LYRICA [Suspect]
     Indication: ARTHRALGIA
     Dosage: 75 MG, 3X/DAY
     Route: 048

REACTIONS (2)
  - WITHDRAWAL SYNDROME [None]
  - ARTHROPATHY [None]
